FAERS Safety Report 6639295-2 (Version None)
Quarter: 2010Q1

REPORT INFORMATION
  Report Type: 
  Country: None (occurrence: None)
  Receive Date: 20100317
  Receipt Date: 20100310
  Transmission Date: 20100710
  Serious: Yes (Death)
  Sender: FDA-Public Use
  Company Number: US-AMGEN-QUU394799

PATIENT
  Sex: Female

DRUGS (2)
  1. NPLATE [Suspect]
     Indication: IDIOPATHIC THROMBOCYTOPENIC PURPURA
     Dates: start: 20081210, end: 20081216
  2. CORTICOSTEROIDS [Concomitant]
     Dates: start: 20070901

REACTIONS (2)
  - PULMONARY OEDEMA [None]
  - RENAL FAILURE CHRONIC [None]
